FAERS Safety Report 8124157-4 (Version None)
Quarter: 2012Q1

REPORT INFORMATION
  Report Type: 
  Country: None (occurrence: None)
  Receive Date: 20120209
  Receipt Date: 20120208
  Transmission Date: 20120608
  Serious: No
  Sender: FDA-Public Use
  Company Number: US-PFIZER INC-2012034898

PATIENT
  Sex: Male
  Weight: 158.73 kg

DRUGS (4)
  1. VICODIN [Concomitant]
     Indication: BACK PAIN
     Dosage: UNK
  2. VICODIN [Concomitant]
     Indication: ARTHRALGIA
  3. CHANTIX [Suspect]
     Indication: SMOKING CESSATION THERAPY
     Dosage: 0.5 MG, 1X/DAY
     Route: 048
     Dates: start: 20111225, end: 20111201
  4. CHANTIX [Suspect]
     Dosage: UNK
     Route: 048
     Dates: start: 20111201, end: 20120118

REACTIONS (3)
  - ABDOMINAL DISCOMFORT [None]
  - DRUG EFFECT DELAYED [None]
  - NAUSEA [None]
